FAERS Safety Report 8290376-X (Version None)
Quarter: 2012Q2

REPORT INFORMATION
  Report Type: 
  Country: None (occurrence: None)
  Receive Date: 20120417
  Receipt Date: 20120411
  Transmission Date: 20120825
  Serious: Yes (Other)
  Sender: FDA-Public Use
  Company Number: US-PFIZER INC-2012028376

PATIENT
  Sex: Female

DRUGS (1)
  1. LIPITOR [Suspect]
     Dosage: UNK

REACTIONS (11)
  - CEREBROVASCULAR ACCIDENT [None]
  - SPINAL FRACTURE [None]
  - BACK DISORDER [None]
  - HEADACHE [None]
  - DEAFNESS [None]
  - RENAL IMPAIRMENT [None]
  - MYOCARDIAL INFARCTION [None]
  - HIP FRACTURE [None]
  - RESPIRATORY ARREST [None]
  - LOSS OF CONSCIOUSNESS [None]
  - RIB FRACTURE [None]
